FAERS Safety Report 21748718 (Version 1)
Quarter: 2022Q4

REPORT INFORMATION
  Report Type: Other
  Country: IN (occurrence: None)
  Receive Date: 20221219
  Receipt Date: 20221219
  Transmission Date: 20230112
  Serious: Yes (Other)
  Sender: FDA-Public Use
  Company Number: IN-ROCHE-2787577

PATIENT
  Age: 33 Year
  Sex: Female

DRUGS (2)
  1. PERJETA [Suspect]
     Active Substance: PERTUZUMAB
     Indication: Breast cancer metastatic
     Route: 042
     Dates: start: 20180702
  2. PERJETA [Suspect]
     Active Substance: PERTUZUMAB
     Indication: Breast cancer metastatic
     Dosage: FORMULATION: INJECTION
     Route: 042
     Dates: start: 20180502

REACTIONS (5)
  - Pain in extremity [Unknown]
  - Central nervous system lesion [Unknown]
  - Breast neoplasm [Unknown]
  - Vertebral lesion [Unknown]
  - Osteosclerosis [Unknown]
